FAERS Safety Report 22633631 (Version 1)
Quarter: 2023Q2

REPORT INFORMATION
  Report Type: Spontaneous
  Country: US (occurrence: US)
  Receive Date: 20230623
  Receipt Date: 20230623
  Transmission Date: 20230722
  Serious: No
  Sender: FDA-Public Use
  Company Number: US-MICRO LABS LIMITED-ML2023-02583

PATIENT
  Age: 95 Year
  Sex: Female
  Weight: 61.29 kg

DRUGS (1)
  1. DORZOLAMIDE [Suspect]
     Active Substance: DORZOLAMIDE
     Indication: Glaucoma
     Route: 047
     Dates: start: 20230330

REACTIONS (2)
  - Product dose omission issue [Unknown]
  - Product container issue [Unknown]
